FAERS Safety Report 25435377 (Version 1)
Quarter: 2025Q2

REPORT INFORMATION
  Report Type: Spontaneous
  Country: US (occurrence: None)
  Receive Date: 20250606
  Receipt Date: 20250606
  Transmission Date: 20250716
  Serious: Yes (Disabling)
  Sender: FDA-CTU
  Company Number: None

PATIENT
  Age: 78 Year
  Sex: Female
  Weight: 81.65 kg

DRUGS (1)
  1. RALOXIFENE [Suspect]
     Active Substance: RALOXIFENE
     Dosage: FREQUENCY : DAILY;?
     Route: 048

REACTIONS (3)
  - Cerebral venous thrombosis [None]
  - Hypercoagulation [None]
  - Cerebral haemorrhage [None]

NARRATIVE: CASE EVENT DATE: 20250512
